FAERS Safety Report 6045270-1 (Version None)
Quarter: 2009Q1

REPORT INFORMATION
  Report Type: 
  Country: None (occurrence: None)
  Receive Date: 20090121
  Receipt Date: 20090109
  Transmission Date: 20090719
  Serious: Yes (Other)
  Sender: FDA-Public Use
  Company Number: PHEH2009US00669

PATIENT
  Sex: Female

DRUGS (3)
  1. CLOZAPINE [Suspect]
     Dosage: 675 UNK, BID
     Route: 048
     Dates: start: 20050211, end: 20081227
  2. KEPPRA [Concomitant]
     Dosage: UNK
  3. ATIVAN [Concomitant]
     Dosage: UNK

REACTIONS (4)
  - AUTISM [None]
  - CONVULSION [None]
  - NEUROLEPTIC MALIGNANT SYNDROME [None]
  - PARKINSON'S DISEASE [None]
